FAERS Safety Report 6765222-3 (Version None)
Quarter: 2010Q2

REPORT INFORMATION
  Report Type: 
  Country: None (occurrence: None)
  Receive Date: 20100610
  Receipt Date: 20100610
  Transmission Date: 20101027
  Serious: Yes (Hospitalization)
  Sender: FDA-Public Use
  Company Number: None

PATIENT
  Sex: Male
  Weight: 79.7 kg

DRUGS (1)
  1. CYTARABINE [Suspect]
     Dosage: 6090 MG
     Dates: end: 20100524

REACTIONS (2)
  - INFUSION SITE ERYTHEMA [None]
  - INFUSION SITE PAIN [None]
